FAERS Safety Report 6845884-2 (Version None)
Quarter: 2010Q3

REPORT INFORMATION
  Report Type: 
  Country: None (occurrence: None)
  Receive Date: 20100715
  Receipt Date: 20070827
  Transmission Date: 20110219
  Serious: Yes (Other)
  Sender: FDA-Public Use
  Company Number: US-PFIZER INC-2007073095

PATIENT
  Sex: Female
  Weight: 68 kg

DRUGS (9)
  1. CHANTIX [Suspect]
     Indication: SMOKING CESSATION THERAPY
     Route: 048
     Dates: start: 20070610, end: 20070720
  2. TEGRETOL [Concomitant]
  3. DILANTIN [Concomitant]
  4. ZESTRIL [Concomitant]
  5. MAXZIDE [Concomitant]
  6. CELEXA [Concomitant]
  7. CALAN - SLOW RELEASE [Concomitant]
  8. ELAVIL [Concomitant]
  9. VITAMINS [Concomitant]

REACTIONS (1)
  - DIZZINESS [None]
